FAERS Safety Report 5889049-X (Version None)
Quarter: 2008Q3

REPORT INFORMATION
  Report Type: 
  Country: None (occurrence: None)
  Receive Date: 20080919
  Receipt Date: 20070917
  Transmission Date: 20090109
  Serious: No
  Sender: FDA-Public Use
  Company Number: US-KINGPHARMUSA00001-K200701198

PATIENT

DRUGS (1)
  1. SONATA [Suspect]
     Dosage: 10 MG, SINGLE
     Route: 048
     Dates: start: 20070916, end: 20070916

REACTIONS (2)
  - ACCIDENTAL EXPOSURE [None]
  - INSOMNIA [None]
